FAERS Safety Report 4299663-3 (Version None)
Quarter: 2004Q1

REPORT INFORMATION
  Report Type: 
  Country: None (occurrence: None)
  Receive Date: 20040217
  Receipt Date: 20040217
  Transmission Date: 20041129
  Serious: Yes (Hospitalization)
  Sender: FDA-Public Use
  Company Number: None

PATIENT
  Age: 23 Year
  Sex: Female
  Weight: 103.4201 kg

DRUGS (2)
  1. COLAZAL [Suspect]
     Indication: COLITIS ULCERATIVE
     Dosage: 225 GM TID
     Dates: start: 20031219, end: 20031223
  2. . [Concomitant]

REACTIONS (4)
  - PROTEINURIA [None]
  - PYREXIA [None]
  - SKIN ULCER [None]
  - VASCULITIS [None]
